FAERS Safety Report 7617942-6 (Version None)
Quarter: 2011Q3

REPORT INFORMATION
  Report Type: 
  Country: None (occurrence: None)
  Receive Date: 20110718
  Receipt Date: 20110705
  Transmission Date: 20111222
  Serious: Yes (Other)
  Sender: FDA-Public Use
  Company Number: PHHY2011ES59802

PATIENT
  Age: 57 Year
  Sex: Male

DRUGS (2)
  1. VACCINES [Concomitant]
  2. TASIGNA [Suspect]
     Dosage: UNK
     Dates: start: 20081210, end: 20110704

REACTIONS (4)
  - EOSINOPHILIC COLITIS [None]
  - VOMITING [None]
  - ABDOMINAL PAIN [None]
  - ABDOMINAL DISTENSION [None]
